FAERS Safety Report 4278932-7 (Version None)
Quarter: 2004Q1

REPORT INFORMATION
  Report Type: 
  Country: None (occurrence: None)
  Receive Date: 20040122
  Receipt Date: 20040113
  Transmission Date: 20041129
  Serious: Yes (Other)
  Sender: FDA-Public Use
  Company Number: HQWYE478220JAN04

PATIENT

DRUGS (2)
  1. RAPAMUNE [Suspect]
     Indication: RENAL IMPAIRMENT
     Dosage: 5 MG 1 X PER 1 DAY, ORAL
     Route: 048
  2. UNSPECIFIED ANTIHYPERTENSIVE AGENT (UNSPECIFIED ANTIHYPERTENSIVE AGENT [Concomitant]

REACTIONS (1)
  - RENAL FAILURE ACUTE [None]
